FAERS Safety Report 16815964 (Version 1)
Quarter: 2019Q3

REPORT INFORMATION
  Report Type: Report from Study
  Country: US (occurrence: US)
  Receive Date: 20190917
  Receipt Date: 20190917
  Transmission Date: 20191005
  Serious: No
  Sender: FDA-Public Use
  Company Number: US-BEH-2019106347

PATIENT
  Age: 66 Year
  Sex: Female

DRUGS (1)
  1. HAEGARDA [Suspect]
     Active Substance: HUMAN C1-ESTERASE INHIBITOR
     Dosage: UNK
     Route: 065
     Dates: start: 20180614

REACTIONS (4)
  - Musculoskeletal pain [Unknown]
  - Depression [Unknown]
  - Arthralgia [Unknown]
  - Pain [Unknown]
